FAERS Safety Report 24977212 (Version 2)
Quarter: 2025Q1

REPORT INFORMATION
  Report Type: Spontaneous
  Country: US (occurrence: US)
  Receive Date: 20250217
  Receipt Date: 20250305
  Transmission Date: 20250409
  Serious: No
  Sender: BAYER HEALTHCARE PHARMACEUTICALS INC.
  Company Number: US-BAYER-2025A017830

PATIENT
  Age: 48 Year
  Sex: Male

DRUGS (7)
  1. KERENDIA [Suspect]
     Active Substance: FINERENONE
     Dates: start: 202307
  2. KERENDIA [Suspect]
     Active Substance: FINERENONE
     Dates: start: 20250212
  3. CARVEDILOL [Concomitant]
     Active Substance: CARVEDILOL
  4. CLONIDINE [Concomitant]
     Active Substance: CLONIDINE
  5. AMLODIPINE [Concomitant]
     Active Substance: AMLODIPINE BESYLATE
  6. OLMESARTAN [Concomitant]
     Active Substance: OLMESARTAN
  7. HYDRALAZINE [Concomitant]
     Active Substance: HYDRALAZINE HYDROCHLORIDE

REACTIONS (1)
  - Blood aldosterone increased [None]
